FAERS Safety Report 16583574 (Version 2)
Quarter: 2019Q4

REPORT INFORMATION
  Report Type: Spontaneous
  Country: GB (occurrence: GB)
  Receive Date: 20190717
  Receipt Date: 20191014
  Transmission Date: 20200122
  Serious: Yes (Hospitalization, Disabling)
  Sender: FDA-Public Use
  Company Number: GB-PFIZER INC-2019300346

PATIENT
  Age: 44 Year
  Sex: Male

DRUGS (2)
  1. BEVACIZUMAB. [Suspect]
     Active Substance: BEVACIZUMAB
  2. ATEZOLIZUMAB. [Suspect]
     Active Substance: ATEZOLIZUMAB

REACTIONS (1)
  - Erythema multiforme [Recovered/Resolved]
